FAERS Safety Report 5905501-2 (Version None)
Quarter: 2008Q4

REPORT INFORMATION
  Report Type: 
  Country: None (occurrence: None)
  Receive Date: 20081002
  Receipt Date: 20080922
  Transmission Date: 20090506
  Serious: Yes (Hospitalization, Other)
  Sender: FDA-Public Use
  Company Number: US-JNJFOC-20080706129

PATIENT
  Sex: Female
  Weight: 49 kg

DRUGS (7)
  1. TOPAMAX [Suspect]
  2. TOPAMAX [Suspect]
     Indication: MIGRAINE PROPHYLAXIS
  3. ATIVAN [Concomitant]
     Indication: DRUG USE FOR UNKNOWN INDICATION
  4. FENERGAN [Concomitant]
     Indication: DRUG USE FOR UNKNOWN INDICATION
  5. BENADRYL [Concomitant]
  6. VALIUM [Concomitant]
     Indication: ANXIETY
  7. PREVACID [Concomitant]
     Indication: DRUG USE FOR UNKNOWN INDICATION

REACTIONS (11)
  - BURNING SENSATION [None]
  - COORDINATION ABNORMAL [None]
  - DIZZINESS [None]
  - DRUG PRESCRIBING ERROR [None]
  - HEADACHE [None]
  - MOOD ALTERED [None]
  - NAUSEA [None]
  - SUICIDAL IDEATION [None]
  - TREMOR [None]
  - VISION BLURRED [None]
  - VOMITING [None]
